FAERS Safety Report 7375109-3 (Version None)
Quarter: 2011Q1

REPORT INFORMATION
  Report Type: 
  Country: None (occurrence: None)
  Receive Date: 20110325
  Receipt Date: 20110317
  Transmission Date: 20110831
  Serious: Yes (Hospitalization, Other)
  Sender: FDA-Public Use
  Company Number: JP-ROCHE-599797

PATIENT
  Sex: Male
  Weight: 56 kg

DRUGS (8)
  1. PREDNISOLONE [Concomitant]
     Route: 048
     Dates: start: 20081021
  2. SIMULECT [Concomitant]
     Dosage: DRUG REPORTED: SIMULECT(BASILIXIMAB (GENETICAL RECOMBINATION))
     Route: 042
     Dates: start: 20081004, end: 20081004
  3. NEORAL [Concomitant]
     Route: 048
     Dates: start: 20090528
  4. MYCOPHENOLATE MOFETIL [Suspect]
     Route: 048
     Dates: start: 20081119
  5. MYCOPHENOLATE MOFETIL [Suspect]
     Route: 048
     Dates: start: 20081017, end: 20081118
  6. MYCOPHENOLATE MOFETIL [Suspect]
     Indication: PROPHYLAXIS AGAINST TRANSPLANT REJECTION
     Dosage: STOP DATE REPORTED AS 2008.
     Route: 048
     Dates: start: 20081001, end: 20081116
  7. NEORAL [Concomitant]
     Route: 048
     Dates: start: 20081021, end: 20090527
  8. SIMULECT [Concomitant]
     Route: 042
     Dates: start: 20080930, end: 20080930

REACTIONS (11)
  - CYTOMEGALOVIRUS INFECTION [None]
  - HAEMORRHOIDS [None]
  - NASOPHARYNGITIS [None]
  - HEADACHE [None]
  - HYPERLIPIDAEMIA [None]
  - HYPERURICAEMIA [None]
  - DYSURIA [None]
  - ANGIOPATHY [None]
  - LEUKOENCEPHALOPATHY [None]
  - PENILE PAIN [None]
  - HEPATIC FUNCTION ABNORMAL [None]
